FAERS Safety Report 9135455 (Version 2)
Quarter: 2013Q1

REPORT INFORMATION
  Report Type: Spontaneous
  Country: US (occurrence: US)
  Receive Date: 20130304
  Receipt Date: 20130313
  Transmission Date: 20140127
  Serious: Yes (Death, Hospitalization)
  Sender: FDA-Public Use
  Company Number: US-PFIZER INC-2013073220

PATIENT
  Age: 52 Year
  Sex: Male

DRUGS (20)
  1. AROMASIN [Suspect]
     Indication: BREAST CANCER METASTATIC
     Dosage: UNK
     Route: 048
     Dates: start: 20120831
  2. AROMASIN [Suspect]
     Dosage: 25 MG, UNK
     Route: 048
     Dates: start: 20120919, end: 20121015
  3. CYTOXAN [Suspect]
     Indication: BREAST CANCER
     Dosage: (4 CYCLES)
     Route: 042
     Dates: start: 2009, end: 20090914
  4. TAXOL [Concomitant]
     Dosage: (1 IN 1 WK)
     Route: 065
     Dates: end: 20091223
  5. TAMOXIFEN [Concomitant]
     Dosage: 20 MG, 1X/DAY
     Route: 065
     Dates: start: 20100330, end: 201011
  6. ZOMETA [Concomitant]
     Dosage: UNK
     Route: 065
     Dates: start: 201010, end: 201103
  7. LUPRON [Concomitant]
     Dosage: UNK
     Route: 065
     Dates: start: 20101206, end: 201103
  8. ABRAXANE [Concomitant]
     Indication: METASTASES TO BONE
     Dosage: UNK
     Route: 065
     Dates: start: 201107
  9. HALAVEN [Concomitant]
     Route: 065
  10. XELODA [Concomitant]
     Dosage: 1 G, 2X/DAY, 2 WEEK ON, 1 WEEK OFF SCHEDULE
     Route: 065
  11. AFINITOR [Concomitant]
     Indication: DISEASE PROGRESSION
     Dosage: UNK
     Route: 065
     Dates: start: 20120831
  12. AFINITOR [Concomitant]
     Dosage: 5 MG, 1X/DAY
     Route: 065
  13. HYDROCODONE [Concomitant]
     Indication: PAIN
     Route: 065
  14. OXYCODONE [Concomitant]
     Dosage: (5 MG,1-2 EVERY 4 HOURS)
     Route: 065
  15. COMPAZINE [Concomitant]
     Indication: NAUSEA
     Dosage: (10 MG, EVERY 6 HOURS AS NEEDED
     Route: 065
  16. TUSSIONEX ^FISONS^ [Concomitant]
     Indication: COUGH
     Dosage: (AS NEEDED)
     Route: 065
  17. VITAMIN D [Concomitant]
     Dosage: 4000 U (4000 OTHER,1 IN 1 D)
     Route: 065
  18. LASIX [Concomitant]
     Dosage: 20 MG, 1X/DAY
     Route: 065
  19. SYMBICORT [Concomitant]
     Dosage: 1600/4.5 BID
     Route: 065
  20. AVASTIN [Concomitant]
     Indication: METASTASES TO BONE
     Dosage: UNK
     Route: 065
     Dates: start: 201107

REACTIONS (5)
  - Disease progression [Fatal]
  - Breast cancer [Fatal]
  - Back pain [Unknown]
  - Febrile neutropenia [Unknown]
  - Dyspnoea exertional [Not Recovered/Not Resolved]
